FAERS Safety Report 24166779 (Version 1)
Quarter: 2024Q3

REPORT INFORMATION
  Report Type: Spontaneous
  Country: BR (occurrence: BR)
  Receive Date: 20240802
  Receipt Date: 20240802
  Transmission Date: 20241017
  Serious: Yes (Hospitalization, Other)
  Sender: CHEPLAPHARM
  Company Number: BR-CHEPLA-2024009900

PATIENT
  Sex: Male

DRUGS (1)
  1. CAPECITABINE [Suspect]
     Active Substance: CAPECITABINE
     Indication: Product used for unknown indication
     Dosage: PATIENT RECEIVED 8 TABLETS/DAY FOR 14 DAYS WITH A PAUSE OF 7 DAYS.
     Route: 048
     Dates: start: 202403

REACTIONS (1)
  - Pancreatitis [Not Recovered/Not Resolved]
